FAERS Safety Report 18946062 (Version 3)
Quarter: 2021Q1

REPORT INFORMATION
  Report Type: Spontaneous
  Country: AU (occurrence: AU)
  Receive Date: 20210226
  Receipt Date: 20210325
  Transmission Date: 20210420
  Serious: Yes (Hospitalization, Other)
  Sender: FDA-Public Use
  Company Number: AU-BAXTER-2021BAX003448

PATIENT
  Age: 70 Year
  Sex: Male

DRUGS (4)
  1. CARBOPLATIN. [Suspect]
     Active Substance: CARBOPLATIN
     Indication: SQUAMOUS CELL CARCINOMA OF THE ORAL CAVITY
     Dosage: VIA PHASEAL ADAPTER?INTRAVENOUS CONTINUOUS INFUSION
     Route: 042
     Dates: start: 20210125
  2. BAXTER 0.9% SODIUM CHLORIDE 9G_L INJECTION BP BAG AHB1324 [Suspect]
     Active Substance: SODIUM CHLORIDE
     Indication: MEDICATION DILUTION
     Dosage: VIA CADD CASSETTE AND CADD TUBING 152 CM?INTRAVENOUS CONTINUOUS INFUSION
     Route: 042
     Dates: start: 20210125, end: 20210129
  3. VIAFLO 5% GLUCOSE IV INFUSION 1000 ML [Suspect]
     Active Substance: DEXTROSE
     Indication: MEDICATION DILUTION
     Dosage: VIA PHASEAL ADAPTER?INTRAVENOUS CONTINUOUS INFUSION
     Route: 042
     Dates: start: 20210125
  4. FLUOROURACIL HS (EBEWE) [Suspect]
     Active Substance: FLUOROURACIL
     Indication: SQUAMOUS CELL CARCINOMA OF THE ORAL CAVITY
     Dosage: VIA CADD CASSETTE AND CADD TUBING 152 CM?INTRAVENOUS CONTINUOUS INFUSION
     Route: 042
     Dates: start: 20210125, end: 20210129

REACTIONS (2)
  - Sepsis [Unknown]
  - Staphylococcal infection [Recovered/Resolved]

NARRATIVE: CASE EVENT DATE: 20210207
